FAERS Safety Report 15424960 (Version 4)
Quarter: 2018Q4

REPORT INFORMATION
  Report Type: Spontaneous
  Country: ES (occurrence: ES)
  Receive Date: 20180925
  Receipt Date: 20181217
  Transmission Date: 20190204
  Serious: Yes (Hospitalization, Other)
  Sender: FDA-Public Use
  Company Number: ES-PFIZER INC-2018380389

PATIENT
  Age: 51 Year
  Sex: Male
  Weight: 67 kg

DRUGS (3)
  1. GENVOYA [Suspect]
     Active Substance: COBICISTAT\ELVITEGRAVIR\EMTRICITABINE\TENOFOVIR ALAFENAMIDE FUMARATE
     Indication: HIV INFECTION
     Dosage: UNK
  2. GENVOYA [Suspect]
     Active Substance: COBICISTAT\ELVITEGRAVIR\EMTRICITABINE\TENOFOVIR ALAFENAMIDE FUMARATE
     Dosage: 30 DF, 1X/DAY
     Dates: start: 20170405, end: 20170405
  3. LORAZEPAM. [Suspect]
     Active Substance: LORAZEPAM
     Dosage: 10 DF, 1X/DAY
     Dates: start: 20170405, end: 20170405

REACTIONS (9)
  - Suicidal ideation [Recovered/Resolved]
  - Electrolyte imbalance [Unknown]
  - Drug abuse [Recovered/Resolved]
  - Renal tubular necrosis [Unknown]
  - Loss of consciousness [Recovered/Resolved]
  - Blood creatine increased [Unknown]
  - Intentional overdose [Recovered/Resolved]
  - Stress [Unknown]
  - Suicide attempt [Recovered/Resolved]

NARRATIVE: CASE EVENT DATE: 2017
